FAERS Safety Report 8808354 (Version 1)
Quarter: 2012Q4

REPORT INFORMATION
  Report Type: Spontaneous
  Country: US (occurrence: None)
  Receive Date: 20120920
  Receipt Date: 20120920
  Transmission Date: 20130627
  Serious: Yes (Hospitalization)
  Sender: FDA-Public Use
  Company Number: None

PATIENT
  Age: 42 Year
  Sex: Female

DRUGS (1)
  1. CIPRO [Suspect]
     Dates: start: 20100321, end: 20100326

REACTIONS (7)
  - Drug-induced liver injury [None]
  - Cholestasis [None]
  - Jaundice [None]
  - Pruritus [None]
  - Fatigue [None]
  - Chills [None]
  - Rash [None]
